FAERS Safety Report 6071321-4 (Version None)
Quarter: 2009Q1

REPORT INFORMATION
  Report Type: 
  Country: None (occurrence: None)
  Receive Date: 20090202
  Receipt Date: 20081105
  Transmission Date: 20090719
  Serious: Yes (Hospitalization)
  Sender: FDA-Public Use
  Company Number: 2008-RO-00074RO

PATIENT
  Age: 53 Year
  Sex: Female
  Weight: 96 kg

DRUGS (13)
  1. LITHIUM CARBONATE [Suspect]
     Indication: BIPOLAR DISORDER
     Dosage: 900 MG (450 MG, 2 IN 1 D), PO; 900 MG (NR,300MG TID),NR
     Route: 048
     Dates: end: 20080730
  2. LITHIUM CARBONATE [Suspect]
     Indication: SCHIZOPHRENIA
     Dosage: 900 MG (450 MG, 2 IN 1 D), PO; 900 MG (NR,300MG TID),NR
     Route: 048
     Dates: end: 20080730
  3. DOXYCYCLINE (DOXYCYCLINE) (DOXYCYCLINE) [Concomitant]
  4. ZYPREXA [Concomitant]
  5. DDAVP (DESMOPRESSIN (DESMOPRESSIN) [Concomitant]
  6. GABAPENTIN (GABAPENTIN) (GABEPENTIN) [Concomitant]
  7. TOPAMAX (TOPIRAMATE) (TOPIRAMATE) [Concomitant]
  8. DEPAKOTE ER (VALPROATE SEMISODIUM) (VALPROATE SEMISODIUM) [Concomitant]
  9. ATENOLOL [Concomitant]
  10. COGENTIN (BENZATROPINE MESILATE) (BENZATROPINE MESILATE) [Concomitant]
  11. PRILOSEC (OMEPRAZOLE) (OMEPRAZOLE) [Concomitant]
  12. NAPROXEN [Concomitant]
  13. LITHIUM CARBONATE [Suspect]

REACTIONS (5)
  - ABDOMINAL PAIN UPPER [None]
  - DYSARTHRIA [None]
  - FALL [None]
  - GAIT DISTURBANCE [None]
  - THERAPEUTIC AGENT TOXICITY [None]
